FAERS Safety Report 14858948 (Version 3)
Quarter: 2021Q3

REPORT INFORMATION
  Report Type: Spontaneous
  Country: US (occurrence: US)
  Receive Date: 20180508
  Receipt Date: 20210914
  Transmission Date: 20211014
  Serious: Yes (Disabling)
  Sender: FDA-Public Use
  Company Number: US-TEVA-816317USA

PATIENT
  Age: 53 Year
  Sex: Female
  Weight: 87.5 kg

DRUGS (27)
  1. DOCETAXEL SAGENT [Suspect]
     Active Substance: DOCETAXEL
     Dosage: EVERY 4 WEEKS
     Route: 042
     Dates: start: 20141016, end: 20141016
  2. DOCETAXEL SANDOZ [Suspect]
     Active Substance: DOCETAXEL
     Dosage: EVERY 4 WEEKS
     Route: 042
     Dates: start: 20140130, end: 20140130
  3. DOCETAXEL ACCORD [Suspect]
     Active Substance: DOCETAXEL
     Dosage: EVERY 4 WEEKS
     Route: 042
     Dates: start: 20141113, end: 20141113
  4. DOCETAXEL SAGENT [Suspect]
     Active Substance: DOCETAXEL
     Dosage: EVERY 4 WEEKS
     Route: 042
     Dates: start: 20141223, end: 20141223
  5. DOCETAXEL SANDOZ [Suspect]
     Active Substance: DOCETAXEL
     Indication: OVARIAN CANCER
     Dosage: EVERY 4 WEEKS
     Route: 042
     Dates: start: 20140130, end: 20140130
  6. CARBOPLATIN HOSPIRA [Concomitant]
     Active Substance: CARBOPLATIN
     Dosage: EVERY 4 WEEKS
     Route: 042
     Dates: start: 20141204, end: 20141223
  7. NEULASTA [Concomitant]
     Active Substance: PEGFILGRASTIM
     Indication: OVARIAN CANCER
     Dosage: EVERY 4 WEEKS
     Route: 058
     Dates: start: 20140130, end: 20141223
  8. DOCETAXEL SAGENT [Suspect]
     Active Substance: DOCETAXEL
     Dosage: EVERY 4 WEEKS
     Route: 042
     Dates: start: 20141113, end: 20141113
  9. DOCETAXEL SANDOZ [Suspect]
     Active Substance: DOCETAXEL
     Dosage: EVERY 4 WEEKS
     Route: 042
     Dates: start: 20140327, end: 20140327
  10. DOCETAXEL SANDOZ [Suspect]
     Active Substance: DOCETAXEL
     Dosage: EVERY 4 WEEKS
     Route: 042
     Dates: start: 20140529, end: 20140529
  11. DOCETAXEL ACCORD [Suspect]
     Active Substance: DOCETAXEL
     Dosage: EVERY 4 WEEKS
     Route: 042
     Dates: start: 20140424, end: 20140424
  12. DOCETAXEL ACCORD [Suspect]
     Active Substance: DOCETAXEL
     Dosage: EVERY 4 WEEKS
     Route: 042
     Dates: start: 20140630, end: 20140630
  13. DOCETAXEL ACCORD [Suspect]
     Active Substance: DOCETAXEL
     Dosage: EVERY 4 WEEKS
     Route: 042
     Dates: start: 20141016, end: 20141016
  14. DOCETAXEL ACCORD [Suspect]
     Active Substance: DOCETAXEL
     Dosage: EVERY 4 WEEKS
     Route: 042
     Dates: start: 20141204, end: 20141204
  15. DOCETAXEL. [Suspect]
     Active Substance: DOCETAXEL
     Indication: OVARIAN CANCER
     Dosage: EVERY 4 WEEKS
     Route: 042
     Dates: start: 20140227, end: 20140227
  16. DOCETAXEL ACCORD [Suspect]
     Active Substance: DOCETAXEL
     Indication: OVARIAN CANCER
     Dosage: EVERY 4 WEEKS
     Route: 042
     Dates: start: 20140327, end: 20140327
  17. DOCETAXEL ACCORD [Suspect]
     Active Substance: DOCETAXEL
     Dosage: EVERY 4 WEEKS
     Route: 042
     Dates: start: 20140529, end: 20140529
  18. DOCETAXEL ACCORD [Suspect]
     Active Substance: DOCETAXEL
     Dosage: EVERY 4 WEEKS
     Route: 042
     Dates: start: 20140814, end: 20140814
  19. DOCETAXEL ACCORD [Suspect]
     Active Substance: DOCETAXEL
     Dosage: EVERY 4 WEEKS
     Route: 042
     Dates: start: 20141223, end: 20141223
  20. CARBOPLATIN HOSPIRA [Concomitant]
     Active Substance: CARBOPLATIN
     Dosage: EVERY 4 WEEKS
     Route: 042
     Dates: start: 20140327, end: 20141016
  21. DOCETAXEL SAGENT [Suspect]
     Active Substance: DOCETAXEL
     Indication: OVARIAN CANCER
     Dosage: EVERY 4 WEEKS
     Route: 042
     Dates: start: 20140814, end: 20140814
  22. DOCETAXEL SANDOZ [Suspect]
     Active Substance: DOCETAXEL
     Dosage: EVERY 4 WEEKS
     Route: 042
     Dates: start: 20140424, end: 20140424
  23. DOCETAXEL ACCORD [Suspect]
     Active Substance: DOCETAXEL
     Dosage: EVERY 4 WEEKS
     Route: 042
     Dates: start: 20141204, end: 20141204
  24. DOCETAXEL ACCORD [Suspect]
     Active Substance: DOCETAXEL
     Dosage: EVERY 4 WEEKS
     Route: 042
     Dates: start: 20140918, end: 20140918
  25. DOCETAXEL ACCORD [Suspect]
     Active Substance: DOCETAXEL
     Dosage: EVERY 4 WEEKS
     Route: 042
     Dates: start: 20140918, end: 20140918
  26. CARBOPLATIN HOSPIRA [Concomitant]
     Active Substance: CARBOPLATIN
     Indication: OVARIAN CANCER
     Dosage: EVERY 4 WEEKS
     Route: 042
     Dates: start: 20140130, end: 20140130
  27. CARBOPLATIN. [Concomitant]
     Active Substance: CARBOPLATIN
     Indication: OVARIAN CANCER
     Dosage: EVERY 4 WEEKS
     Route: 042
     Dates: start: 20140227, end: 20140227

REACTIONS (4)
  - Madarosis [Not Recovered/Not Resolved]
  - Hair texture abnormal [Not Recovered/Not Resolved]
  - Hair colour changes [Not Recovered/Not Resolved]
  - Alopecia areata [Not Recovered/Not Resolved]

NARRATIVE: CASE EVENT DATE: 201506
